FAERS Safety Report 8534982-3 (Version None)
Quarter: 2012Q3

REPORT INFORMATION
  Report Type: 
  Country: None (occurrence: None)
  Receive Date: 20120724
  Receipt Date: 20120718
  Transmission Date: 20120928
  Serious: No
  Sender: FDA-Public Use
  Company Number: US-PFIZER INC-2012174589

PATIENT
  Sex: Male

DRUGS (1)
  1. SUTENT [Suspect]
     Indication: NEUROENDOCRINE CARCINOMA
     Dosage: 37.5 MG, DAILY

REACTIONS (1)
  - DRUG INTOLERANCE [None]
